FAERS Safety Report 5533771-1 (Version None)
Quarter: 2007Q4

REPORT INFORMATION
  Report Type: 
  Country: None (occurrence: None)
  Receive Date: 20071129
  Receipt Date: 20071123
  Transmission Date: 20080405
  Serious: Yes (Hospitalization)
  Sender: FDA-Public Use
  Company Number: 2007SP023616

PATIENT
  Age: 52 Year
  Sex: Female

DRUGS (1)
  1. PEGETRON (PEGINTERFERON ALFA-2B W/RIBAVIRIN)  (PEGYLATED INTERFERON AL [Suspect]
     Indication: DRUG USE FOR UNKNOWN INDICATION
     Dosage: SC
     Route: 058
     Dates: start: 20070411

REACTIONS (3)
  - BRAIN ABSCESS [None]
  - CEREBROVASCULAR ACCIDENT [None]
  - SPEECH DISORDER [None]
